FAERS Safety Report 4830846-7 (Version None)
Quarter: 2005Q4

REPORT INFORMATION
  Report Type: 
  Country: None (occurrence: None)
  Receive Date: 20051117
  Receipt Date: 20051007
  Transmission Date: 20060501
  Serious: Yes (Hospitalization, Disabling)
  Sender: FDA-Public Use
  Company Number: US-MERCK-0510USA05624

PATIENT
  Age: 47 Year
  Sex: Male
  Weight: 80 kg

DRUGS (8)
  1. VIOXX [Suspect]
     Indication: CARPAL TUNNEL SYNDROME
     Route: 048
     Dates: start: 19991001, end: 20031007
  2. VIOXX [Suspect]
     Indication: DIABETIC NEUROPATHY
     Route: 048
     Dates: start: 19991001, end: 20031007
  3. GLUCOTROL XL [Concomitant]
     Route: 048
  4. GLUCOPHAGE [Concomitant]
     Route: 048
  5. NEURONTIN [Concomitant]
     Route: 065
  6. TAGAMET [Concomitant]
     Route: 065
  7. ASPIRIN [Concomitant]
     Route: 065
  8. ZANTAC [Concomitant]
     Route: 065

REACTIONS (6)
  - ARTERIOSPASM CORONARY [None]
  - BACK INJURY [None]
  - CEREBROVASCULAR ACCIDENT [None]
  - DEPRESSION [None]
  - MYOCARDIAL INFARCTION [None]
  - NECK INJURY [None]
